FAERS Safety Report 9188780 (Version 2)
Quarter: 2013Q4

REPORT INFORMATION
  Report Type: Report from Study
  Country: JP (occurrence: JP)
  Receive Date: 20130326
  Receipt Date: 20131125
  Transmission Date: 20140711
  Serious: Yes (Other)
  Sender: FDA-Public Use
  Company Number: JP-VERTEX PHARMACEUTICALS INC.-2013-004024

PATIENT
  Age: 48 Year
  Sex: Male

DRUGS (14)
  1. VX-950 (TELAPREVIR) [Suspect]
     Indication: CHRONIC HEPATITIS C
     Dosage: 2250 MG, QD
     Route: 048
     Dates: start: 20120912, end: 20121004
  2. VX-950 (TELAPREVIR) [Suspect]
     Dosage: 1500 MG, QD
     Route: 048
     Dates: start: 20121005, end: 20121205
  3. RIBAVIRIN [Suspect]
     Indication: CHRONIC HEPATITIS C
     Dosage: 1000 MG, QD
     Route: 048
     Dates: start: 20120912, end: 20120927
  4. RIBAVIRIN [Suspect]
     Dosage: 800 MG, QD
     Route: 048
     Dates: start: 20120928, end: 20130227
  5. PEGINTERFERON ALFA-2B [Suspect]
     Indication: CHRONIC HEPATITIS C
     Dosage: 1.4 ?G/KG, QW
     Route: 058
     Dates: start: 20120912
  6. PEGINTERFERON ALFA-2B [Suspect]
     Dosage: 1.5 ?G/KG, QW
     Route: 058
     Dates: end: 20121122
  7. PEGINTERFERON ALFA-2B [Suspect]
     Dosage: 1.0 ?G/KG, QW
     Route: 058
     Dates: start: 20121129, end: 20130104
  8. PEGINTERFERON ALFA-2B [Suspect]
     Dosage: 0.5 ?G/KG, QW
     Route: 058
     Dates: start: 20130110, end: 20130110
  9. PEGINTERFERON ALFA-2B [Suspect]
     Dosage: 1.0 ?G/KG, QW
     Route: 058
     Dates: start: 20130117, end: 20130124
  10. PEGINTERFERON ALFA-2B [Suspect]
     Dosage: 0.5 ?G/KG, QW
     Route: 058
     Dates: start: 20130130, end: 20130130
  11. PEGINTERFERON ALFA-2B [Suspect]
     Dosage: 1.0 ?G/KG, QW
     Route: 058
     Dates: start: 20130207, end: 20130207
  12. PEGINTERFERON ALFA-2B [Suspect]
     Dosage: 0.5 ?G/KG, QW
     Route: 058
     Dates: start: 20130214, end: 20130214
  13. PEGINTERFERON ALFA-2B [Suspect]
     Dosage: 1.0 ?G/KG, QW
     Route: 058
     Dates: start: 20130221, end: 20130221
  14. TAKEPRON [Concomitant]
     Dosage: 30 MG, QD
     Route: 048
     Dates: start: 20121004

REACTIONS (1)
  - Neutrophil count decreased [Recovered/Resolved]
